FAERS Safety Report 4348539-1 (Version None)
Quarter: 2004Q2

REPORT INFORMATION
  Report Type: 
  Country: None (occurrence: None)
  Receive Date: 20040423
  Receipt Date: 20040415
  Transmission Date: 20050107
  Serious: Yes (Other)
  Sender: FDA-Public Use
  Company Number: 200314458BCC

PATIENT
  Age: 79 Year
  Sex: Female
  Weight: 56.6996 kg

DRUGS (3)
  1. ALEVE [Suspect]
     Indication: ARTHRALGIA
     Dosage: 220 MG QD ORAL
     Route: 048
     Dates: start: 20030801, end: 20031130
  2. NASACORT [Concomitant]
  3. FOSAMAX [Concomitant]

REACTIONS (1)
  - BLOOD PRESSURE INCREASED [None]
